FAERS Safety Report 15900626 (Version 1)
Quarter: 2019Q1

REPORT INFORMATION
  Report Type: Spontaneous
  Country: US (occurrence: US)
  Receive Date: 20190109
  Receipt Date: 20190109
  Transmission Date: 20190417
  Serious: No
  Sender: FDA-Public Use
  Company Number: None

PATIENT
  Age: 53 Year
  Sex: Female

DRUGS (2)
  1. REPATHA [Suspect]
     Active Substance: EVOLOCUMAB
     Indication: TYPE V HYPERLIPIDAEMIA
     Dosage: INJECT 140MG SUBCUTANEOUSLY EVERY 2 WEEKS AS DIRECTED
     Route: 058
     Dates: start: 201802
  2. REPATHA [Suspect]
     Active Substance: EVOLOCUMAB
     Indication: ARTERIOSCLEROSIS
     Dosage: INJECT 140MG SUBCUTANEOUSLY EVERY 2 WEEKS AS DIRECTED
     Route: 058
     Dates: start: 201802

REACTIONS (3)
  - Post procedural complication [None]
  - Headache [None]
  - Chills [None]
